FAERS Safety Report 6213833-6 (Version None)
Quarter: 2009Q2

REPORT INFORMATION
  Report Type: 
  Country: None (occurrence: None)
  Receive Date: 20090604
  Receipt Date: 20090602
  Transmission Date: 20091009
  Serious: Yes (Death)
  Sender: FDA-Public Use
  Company Number: CA-ASTRAZENECA-2009UW13978

PATIENT
  Age: 38 Year

DRUGS (2)
  1. SEROQUEL [Suspect]
     Indication: AGITATION
     Route: 048
  2. MANY MEDICATIONS [Concomitant]

REACTIONS (1)
  - SUDDEN DEATH [None]
